FAERS Safety Report 12413775 (Version 1)
Quarter: 2016Q2

REPORT INFORMATION
  Report Type: Spontaneous
  Country: US (occurrence: US)
  Receive Date: 20160527
  Receipt Date: 20160527
  Transmission Date: 20160815
  Serious: No
  Sender: FDA-Public Use
  Company Number: US-SUPERNUS PHARMACEUTICALS, INC.-2016SUP00083

PATIENT
  Sex: Female
  Weight: 56.69 kg

DRUGS (11)
  1. TROKENDI XR [Suspect]
     Active Substance: TOPIRAMATE
     Indication: CEREBRAL DISORDER
  2. VITAMIN B3 [Concomitant]
     Active Substance: NIACIN
  3. TROKENDI XR [Suspect]
     Active Substance: TOPIRAMATE
     Indication: CEREBRAL DISORDER
     Dosage: 100 MG, UNK
     Dates: start: 2014
  4. TROKENDI XR [Suspect]
     Active Substance: TOPIRAMATE
     Indication: CEREBRAL DISORDER
  5. SPIRONOLACTONE. [Concomitant]
     Active Substance: SPIRONOLACTONE
     Dosage: 100 MG, UNK
  6. TROKENDI XR [Suspect]
     Active Substance: TOPIRAMATE
     Indication: MIGRAINE
     Dosage: 100 MG, 1X/DAY
     Route: 048
     Dates: start: 2014, end: 2014
  7. LEXAPRO [Concomitant]
     Active Substance: ESCITALOPRAM OXALATE
  8. TROKENDI XR [Suspect]
     Active Substance: TOPIRAMATE
     Indication: MIGRAINE
     Dosage: 200 UNK, 1X/DAY
     Route: 048
     Dates: start: 2014, end: 2015
  9. GILENYA [Concomitant]
     Active Substance: FINGOLIMOD HYDROCHLORIDE
     Indication: MULTIPLE SCLEROSIS
  10. GUMMY VITES [Concomitant]
  11. TROKENDI XR [Suspect]
     Active Substance: TOPIRAMATE
     Indication: MIGRAINE
     Dosage: 50 MG, 1X/DAY
     Route: 048
     Dates: start: 2015

REACTIONS (3)
  - Aphasia [Recovering/Resolving]
  - Memory impairment [Unknown]
  - Therapeutic product ineffective for unapproved indication [Recovered/Resolved]
